FAERS Safety Report 5954912-8 (Version None)
Quarter: 2008Q4

REPORT INFORMATION
  Report Type: 
  Country: None (occurrence: None)
  Receive Date: 20081117
  Receipt Date: 20081015
  Transmission Date: 20090506
  Serious: No
  Sender: FDA-Public Use
  Company Number: US-BAYER-200836104NA

PATIENT
  Sex: Female

DRUGS (1)
  1. YAZ [Suspect]
     Indication: MENOPAUSAL SYMPTOMS
     Route: 048

REACTIONS (2)
  - HYPERTENSION [None]
  - NO ADVERSE EVENT [None]
